FAERS Safety Report 8824764 (Version 1)
Quarter: 2012Q4

REPORT INFORMATION
  Report Type: 
  Country: FR (occurrence: FR)
  Receive Date: 20121004
  Receipt Date: 20121004
  Transmission Date: 20130627
  Serious: Yes (Hospitalization)
  Sender: FDA-Public Use
  Company Number: FR-ASTRAZENECA-2012SE74624

PATIENT
  Age: 52 Year
  Sex: Male
  Weight: 68 kg

DRUGS (12)
  1. INEXIUM [Suspect]
     Route: 048
     Dates: start: 20120704, end: 20120801
  2. METHOTREXATE [Interacting]
     Route: 042
     Dates: start: 20120629, end: 20120629
  3. METHOTREXATE [Interacting]
     Route: 042
     Dates: start: 20120712, end: 20120712
  4. METHOTREXATE [Interacting]
     Route: 042
     Dates: start: 20120801
  5. BACTRIM FORTE [Interacting]
     Route: 048
     Dates: start: 20120628, end: 20120723
  6. CORTANCYL [Concomitant]
     Dates: start: 20120628
  7. VALACICLOVIR [Concomitant]
     Dates: start: 20120628
  8. LEDERFOLINE [Concomitant]
     Dates: start: 20120628
  9. RITUXIMAB [Concomitant]
     Dates: start: 20120629, end: 20120629
  10. PREDNISONE [Concomitant]
     Dates: start: 20120629, end: 20120703
  11. ETOPOSIDE [Concomitant]
     Dates: start: 20120630, end: 20120630
  12. CARMUSTINE [Concomitant]
     Dates: start: 20120701, end: 20120701

REACTIONS (2)
  - Drug interaction [Recovered/Resolved]
  - Renal failure [Recovered/Resolved]
